FAERS Safety Report 7918221-X (Version None)
Quarter: 2011Q4

REPORT INFORMATION
  Report Type: 
  Country: None (occurrence: None)
  Receive Date: 20111116
  Receipt Date: 20110106
  Transmission Date: 20120403
  Serious: Yes (Other)
  Sender: FDA-Public Use
  Company Number: US-GLAXOSMITHKLINE-A0905592A

PATIENT
  Sex: Male

DRUGS (2)
  1. ZYPREXA [Concomitant]
     Indication: SCHIZOPHRENIA
     Dates: start: 19890101
  2. PAXIL [Suspect]
     Indication: DEPRESSION

REACTIONS (11)
  - SUICIDAL IDEATION [None]
  - NERVOUSNESS [None]
  - CRIME [None]
  - DRUG INEFFECTIVE [None]
  - AMNESIA [None]
  - AGGRESSION [None]
  - FEELING ABNORMAL [None]
  - MENTAL IMPAIRMENT [None]
  - MOOD ALTERED [None]
  - CONFUSIONAL STATE [None]
  - IMPRISONMENT [None]
